FAERS Safety Report 7543594-X (Version None)
Quarter: 2011Q2

REPORT INFORMATION
  Report Type: 
  Country: None (occurrence: None)
  Receive Date: 20110613
  Receipt Date: 20021223
  Transmission Date: 20111010
  Serious: Yes (Death)
  Sender: FDA-Public Use
  Company Number: PHFR2002GB04178

PATIENT
  Sex: Male

DRUGS (6)
  1. TAMSULOSIN HCL [Concomitant]
     Dosage: 400 UG/DAY
     Route: 048
     Dates: end: 20021117
  2. LORAZEPAM [Concomitant]
     Dosage: 3 MG/DAY
     Route: 048
     Dates: start: 19990101, end: 20021117
  3. VENLAFAXINE [Concomitant]
     Dosage: 75 MG/DAY
     Route: 048
     Dates: end: 20021117
  4. ASPIRIN [Concomitant]
     Dosage: 75 MG/DAY
     Route: 048
     Dates: end: 20021117
  5. CLOZARIL [Suspect]
     Indication: SCHIZOPHRENIA
     Dosage: 550 MG/DAY
     Route: 048
     Dates: start: 19990713
  6. TOLTERODINE TARTRATE [Concomitant]
     Dosage: 4 MG/DAY
     Route: 048
     Dates: end: 20021117

REACTIONS (1)
  - COMPLETED SUICIDE [None]
